FAERS Safety Report 19968739 (Version 1)
Quarter: 2021Q4

REPORT INFORMATION
  Report Type: Spontaneous
  Country: US (occurrence: US)
  Receive Date: 20211019
  Receipt Date: 20211019
  Transmission Date: 20220303
  Serious: Yes (Hospitalization, Other)
  Sender: FDA-Public Use
  Company Number: US-CONCORD BIOTECH LIMITED-CBL202110-000542

PATIENT
  Age: 3 Year
  Sex: Female

DRUGS (2)
  1. TACROLIMUS [Suspect]
     Active Substance: TACROLIMUS
     Indication: Immunosuppression
  2. ENOXAPARIN [Concomitant]
     Active Substance: ENOXAPARIN
     Indication: Portal vein thrombosis
     Dosage: AT PROPHYLACTIC DOSING

REACTIONS (4)
  - Multisystem inflammatory syndrome in children [Recovered/Resolved]
  - Portal vein thrombosis [Recovered/Resolved]
  - COVID-19 [Recovered/Resolved]
  - Drug level above therapeutic [Unknown]
